FAERS Safety Report 5453438-8 (Version None)
Quarter: 2007Q3

REPORT INFORMATION
  Report Type: 
  Country: None (occurrence: None)
  Receive Date: 20070913
  Receipt Date: 20070829
  Transmission Date: 20080115
  Serious: Yes (Other)
  Sender: FDA-Public Use
  Company Number: SPV1-2007-03996

PATIENT
  Age: 29 Year
  Sex: Female
  Weight: 49.9 kg

DRUGS (3)
  1. ADDERALL XR 10 [Suspect]
     Indication: ATTENTION DEFICIT/HYPERACTIVITY DISORDER
     Dosage: 20 MG, 1X/DAY; QD; ORAL
     Route: 048
     Dates: start: 20060701, end: 20060901
  2. AMBIEN CR [Concomitant]
  3. XANAX [Concomitant]

REACTIONS (2)
  - NON-CARDIAC CHEST PAIN [None]
  - SYNCOPE [None]
